FAERS Safety Report 8788957 (Version 1)
Quarter: 2012Q4

REPORT INFORMATION
  Report Type: 
  Country: US (occurrence: US)
  Receive Date: 20120914
  Receipt Date: 20120914
  Transmission Date: 20130627
  Serious: No
  Sender: FDA-Public Use
  Company Number: US-VERTEX PHARMACEUTICAL INC.-AE-2012-007929

PATIENT
  Age: 59 None
  Sex: Female
  Weight: 77.27 kg

DRUGS (12)
  1. INCIVEK [Suspect]
     Indication: HEPATITIS C
     Route: 048
     Dates: start: 20120509
  2. RIBAVIRIN [Concomitant]
     Indication: HEPATITIS C
     Route: 048
     Dates: start: 20120509
  3. PEGASYS [Concomitant]
     Indication: HEPATITIS C
     Route: 058
  4. PROZAC [Concomitant]
     Indication: HEPATITIS C
     Route: 048
  5. POTASSIUM CHLORIDE [Concomitant]
     Route: 048
  6. MULTIVITAMIN [Concomitant]
     Route: 048
  7. CALCIUM [Concomitant]
     Route: 048
  8. VITAMIN D [Concomitant]
     Route: 048
  9. FLAXSEED OIL [Concomitant]
     Route: 048
  10. VITAMIN C [Concomitant]
     Route: 048
  11. FISH OIL [Concomitant]
     Route: 048
  12. VITAMIN B12 [Concomitant]
     Route: 030

REACTIONS (6)
  - Drug dose omission [Recovered/Resolved]
  - Headache [Not Recovered/Not Resolved]
  - Eructation [Not Recovered/Not Resolved]
  - Flatulence [Not Recovered/Not Resolved]
  - Vomiting [Recovered/Resolved]
  - Nausea [Not Recovered/Not Resolved]
